FAERS Safety Report 4398999-5 (Version None)
Quarter: 2004Q3

REPORT INFORMATION
  Report Type: 
  Country: None (occurrence: None)
  Receive Date: 20040715
  Receipt Date: 20020516
  Transmission Date: 20050211
  Serious: Yes (Hospitalization)
  Sender: FDA-Public Use
  Company Number: US-MERCK-0205USA02008

PATIENT
  Age: 88 Year
  Sex: Male

DRUGS (6)
  1. VICODIN [Concomitant]
     Indication: PAIN
     Route: 065
  2. ASPIRIN [Concomitant]
     Route: 065
  3. LIPITOR [Concomitant]
     Route: 065
  4. VIOXX [Suspect]
     Indication: ARTHRITIS
     Route: 048
     Dates: start: 20010801
  5. VIOXX [Suspect]
     Route: 048
     Dates: start: 20010801, end: 20010917
  6. VITAMINS (UNSPECIFIED) [Concomitant]
     Route: 065

REACTIONS (22)
  - ABDOMINAL PAIN [None]
  - ACUTE MYOCARDIAL INFARCTION [None]
  - ARTHRALGIA [None]
  - ASTHMA [None]
  - BLOOD CHOLESTEROL INCREASED [None]
  - BRONCHITIS [None]
  - CHEST PAIN [None]
  - CORONARY ARTERY DISEASE [None]
  - CORONARY ARTERY OCCLUSION [None]
  - DERMATITIS CONTACT [None]
  - DIABETES MELLITUS [None]
  - DRUG HYPERSENSITIVITY [None]
  - DYSPNOEA [None]
  - EYE PAIN [None]
  - FALL [None]
  - GASTROENTERITIS VIRAL [None]
  - INJURY [None]
  - NAUSEA [None]
  - PROSTATIC SPECIFIC ANTIGEN ABNORMAL [None]
  - PROSTATIC SPECIFIC ANTIGEN INCREASED [None]
  - SELF-MEDICATION [None]
  - VENTRICULAR TACHYCARDIA [None]
